FAERS Safety Report 8971583 (Version 1)
Quarter: 2012Q4

REPORT INFORMATION
  Report Type: 
  Country: US (occurrence: US)
  Receive Date: 20121211
  Receipt Date: 20121211
  Transmission Date: 20130627
  Serious: No
  Sender: FDA-Public Use
  Company Number: US-PFIZER INC-2012309452

PATIENT
  Age: 16 Year
  Sex: Female
  Weight: 54.42 kg

DRUGS (1)
  1. ADVIL [Suspect]
     Dosage: 100 tablets at once
     Route: 048
     Dates: start: 20121205, end: 20121205

REACTIONS (2)
  - Accidental overdose [Unknown]
  - Abdominal pain upper [Not Recovered/Not Resolved]
